FAERS Safety Report 17286421 (Version 1)
Quarter: 2020Q1

REPORT INFORMATION
  Report Type: Spontaneous
  Country: US (occurrence: US)
  Receive Date: 20200118
  Receipt Date: 20200118
  Transmission Date: 20200409
  Serious: No
  Sender: FDA-Public Use
  Company Number: US-DEXPHARM-20190868

PATIENT
  Age: 58 Year
  Sex: Male
  Weight: 97.51 kg

DRUGS (4)
  1. OMEPRAZOLE DELAYED RELEASE TABLETS 20 MG [Suspect]
     Active Substance: OMEPRAZOLE
     Indication: GASTROOESOPHAGEAL REFLUX DISEASE
     Dosage: 40 MG, THREE TIMES
     Route: 048
     Dates: start: 20191001, end: 20191002
  2. HYDROCODONE [Concomitant]
     Active Substance: HYDROCODONE
     Indication: TOOTHACHE
     Dosage: UNK
     Route: 048
     Dates: start: 20191002, end: 20191002
  3. OMEPRAZOLE DELAYED RELEASE TABLETS 20 MG [Suspect]
     Active Substance: OMEPRAZOLE
     Indication: GASTROOESOPHAGEAL REFLUX DISEASE
     Dosage: DAILY DOSE: 20 MG MILLGRAM(S) EVERY DAYS
     Route: 048
     Dates: start: 2019, end: 2019
  4. IBUPROFEN. [Concomitant]
     Active Substance: IBUPROFEN
     Indication: TOOTHACHE
     Dosage: UNK
     Route: 065
     Dates: start: 20191002

REACTIONS (2)
  - Accidental overdose [Recovered/Resolved]
  - Wrong product administered [Recovered/Resolved]

NARRATIVE: CASE EVENT DATE: 20191001
